FAERS Safety Report 14308337 (Version 1)
Quarter: 2017Q4

REPORT INFORMATION
  Report Type: Report from Study
  Country: US (occurrence: US)
  Receive Date: 20171220
  Receipt Date: 20171220
  Transmission Date: 20180321
  Serious: Yes (Hospitalization)
  Sender: FDA-Public Use
  Company Number: US-BAYER-2017-234310

PATIENT
  Age: 50 Year
  Sex: Female

DRUGS (2)
  1. STIVARGA [Suspect]
     Active Substance: REGORAFENIB
     Indication: COLORECTAL CANCER METASTATIC
     Dosage: 80 MG DAILY, 3 WEEKS ON 1 WEEK OFF
     Route: 048
     Dates: start: 20171213
  2. STIVARGA [Suspect]
     Active Substance: REGORAFENIB
     Indication: COLORECTAL CANCER METASTATIC
     Dosage: 160 MG, QD
     Route: 048
     Dates: start: 20171127, end: 20171129

REACTIONS (12)
  - Hepatitis [None]
  - Jaundice [None]
  - Decreased appetite [None]
  - Hypertension [None]
  - Hospitalisation [None]
  - Dry mouth [None]
  - Stomatitis [None]
  - Oral pain [None]
  - Fatigue [None]
  - Dysphonia [None]
  - Exercise tolerance decreased [Recovering/Resolving]
  - Abdominal pain upper [None]

NARRATIVE: CASE EVENT DATE: 2017
